FAERS Safety Report 4355234-1 (Version None)
Quarter: 2004Q2

REPORT INFORMATION
  Report Type: 
  Country: None (occurrence: None)
  Receive Date: 20040506
  Receipt Date: 20040426
  Transmission Date: 20050107
  Serious: Yes (Hospitalization, Other)
  Sender: FDA-Public Use
  Company Number: A-CH2003-03711

PATIENT
  Age: 56 Year
  Sex: Female

DRUGS (12)
  1. TRACLEER [Suspect]
     Indication: PULMONARY HYPERTENSION
     Dosage: SEE IMAGE
     Route: 048
     Dates: start: 20030704, end: 20030803
  2. TRACLEER [Suspect]
     Indication: PULMONARY HYPERTENSION
     Dosage: SEE IMAGE
     Route: 048
     Dates: start: 20030804, end: 20030926
  3. DIGOXIN [Concomitant]
  4. LASIX [Concomitant]
  5. ALDACTONE [Concomitant]
  6. COUMADIN [Concomitant]
  7. POTASSIUM CHLORIDE [Concomitant]
  8. OMEPRAZOLE [Concomitant]
  9. PREVISCAN (FLUINDIONE) [Concomitant]
  10. MOTILIUM ^BYK GULDEN^ (DOMPERIDONE) [Concomitant]
  11. LEXOMIL (BROMAZEPAM) [Concomitant]
  12. TRAMADOL HCL [Concomitant]

REACTIONS (7)
  - CARDIAC FAILURE [None]
  - CATHETER RELATED INFECTION [None]
  - CYANOSIS [None]
  - CYTOLYTIC HEPATITIS [None]
  - RIGHT VENTRICULAR FAILURE [None]
  - SEPTIC SHOCK [None]
  - STAPHYLOCOCCAL INFECTION [None]
